FAERS Safety Report 7436737-X (Version None)
Quarter: 2011Q2

REPORT INFORMATION
  Report Type: 
  Country: None (occurrence: None)
  Receive Date: 20110426
  Receipt Date: 20110418
  Transmission Date: 20111010
  Serious: Yes (Death, Life-Threatening)
  Sender: FDA-Public Use
  Company Number: GB-ELI_LILLY_AND_COMPANY-GB201104004973

PATIENT
  Age: 60 Year
  Sex: Male

DRUGS (6)
  1. MIRTAZAPINE [Concomitant]
     Indication: DEPRESSION
     Dosage: 45 MG, QD
     Route: 048
  2. DIAZEPAM [Concomitant]
     Indication: AGITATION
     Dosage: 5 MG, TID
     Route: 048
  3. PROPRANOLOL [Concomitant]
     Indication: ANXIETY
     Dosage: 80 MG, QD
     Route: 048
  4. OLANZAPINE [Suspect]
     Dosage: 10 MG, QD
     Route: 048
     Dates: start: 20110302
  5. CHLORDIAZEPOXIDE [Concomitant]
     Indication: AGITATION
     Dosage: 5 MG, TID
     Route: 048
  6. LEVOMEPROMAZINE [Concomitant]
     Indication: AGITATION
     Dosage: 50 MG, EVERY 6 HRS
     Route: 048
     Dates: start: 20110302

REACTIONS (3)
  - PULMONARY EMBOLISM [None]
  - LOWER RESPIRATORY TRACT INFECTION [None]
  - OFF LABEL USE [None]
